FAERS Safety Report 5799372-5 (Version None)
Quarter: 2008Q3

REPORT INFORMATION
  Report Type: 
  Country: None (occurrence: None)
  Receive Date: 20080703
  Receipt Date: 20080625
  Transmission Date: 20090109
  Serious: Yes (Other)
  Sender: FDA-Public Use
  Company Number: US-PFIZER INC-2008053623

PATIENT
  Sex: Male
  Weight: 105 kg

DRUGS (5)
  1. DEPO-MEDROL [Suspect]
     Indication: PAIN
     Route: 030
  2. OXYCODONE HCL [Concomitant]
  3. CYMBALTA [Concomitant]
  4. LISINOPRIL [Concomitant]
  5. ANDROGEL [Concomitant]

REACTIONS (4)
  - HEADACHE [None]
  - HYPERTENSION [None]
  - ORAL CANDIDIASIS [None]
  - PSYCHOTIC DISORDER [None]
